FAERS Safety Report 5443028-5 (Version None)
Quarter: 2007Q3

REPORT INFORMATION
  Report Type: 
  Country: None (occurrence: None)
  Receive Date: 20070905
  Receipt Date: 20070815
  Transmission Date: 20080115
  Serious: No
  Sender: FDA-Public Use
  Company Number: GBWYE063020JUL07

PATIENT
  Age: 50 Year
  Sex: Male
  Weight: 85.81 kg

DRUGS (8)
  1. VENLAFAXIINE HCL [Suspect]
     Indication: DEPRESSION
     Dosage: 225MG, FREQUENCY UNKNOWN
     Route: 048
     Dates: start: 20020419
  2. VENLAFAXIINE HCL [Suspect]
     Indication: PERSONALITY DISORDER
     Dosage: 150MG, FREQUENCY UNKNOWN
     Route: 048
     Dates: end: 20070528
  3. PROCYCLIDINE HYDROCHLORIDE 2MG TAB [Concomitant]
     Indication: EXTRAPYRAMIDAL DISORDER
     Route: 048
     Dates: start: 19910101, end: 20070601
  4. TETRAHYDROCANNABINOL [Suspect]
     Dosage: UNKNOWN
     Dates: end: 20070101
  5. SIMVASTATIN [Concomitant]
     Indication: BLOOD CHOLESTEROL DECREASED
     Route: 048
     Dates: start: 20050101
  6. ETHANOL [Suspect]
     Dosage: UNKNOWN
  7. DEPAKOTE [Concomitant]
     Indication: MOOD ALTERED
     Route: 048
     Dates: start: 20030101, end: 20070601
  8. FLUOXETINE [Concomitant]
     Indication: DEPRESSION
     Route: 048
     Dates: start: 20070501, end: 20070601

REACTIONS (2)
  - PARAESTHESIA [None]
  - TREMOR [None]
